FAERS Safety Report 9844164 (Version 1)
Quarter: 2014Q1

REPORT INFORMATION
  Report Type: Not Available
  Country: SE (occurrence: SE)
  Receive Date: 20140127
  Receipt Date: 20140127
  Transmission Date: 20141002
  Serious: Yes (Other)
  Sender: FDA-Public Use
  Company Number: SE-BEH-2014040285

PATIENT
  Age: 72 Year
  Sex: Male

DRUGS (1)
  1. PRIVIGEN [Suspect]

REACTIONS (1)
  - Tubulointerstitial nephritis [Recovered/Resolved with Sequelae]
